FAERS Safety Report 7712368-9 (Version None)
Quarter: 2011Q3

REPORT INFORMATION
  Report Type: 
  Country: None (occurrence: None)
  Receive Date: 20110826
  Receipt Date: 20110819
  Transmission Date: 20111222
  Serious: No
  Sender: FDA-Public Use
  Company Number: AR-ROCHE-797870

PATIENT
  Sex: Female
  Weight: 61 kg

DRUGS (1)
  1. ISOTRETINOIN [Suspect]
     Indication: ACNE
     Route: 048
     Dates: start: 20110728, end: 20110818

REACTIONS (2)
  - NO ADVERSE EVENT [None]
  - PREGNANCY [None]
